FAERS Safety Report 25721792 (Version 1)
Quarter: 2025Q3

REPORT INFORMATION
  Report Type: Spontaneous
  Country: SG (occurrence: SG)
  Receive Date: 20250825
  Receipt Date: 20250825
  Transmission Date: 20251020
  Serious: Yes (Other)
  Sender: MYLAN
  Company Number: SG-MYLANLABS-2025M1070864

PATIENT
  Age: 76 Year
  Sex: Male

DRUGS (32)
  1. AMLODIPINE [Suspect]
     Active Substance: AMLODIPINE BESYLATE
     Indication: Product used for unknown indication
  2. AMLODIPINE [Suspect]
     Active Substance: AMLODIPINE BESYLATE
     Route: 065
  3. AMLODIPINE [Suspect]
     Active Substance: AMLODIPINE BESYLATE
     Route: 065
  4. AMLODIPINE [Suspect]
     Active Substance: AMLODIPINE BESYLATE
  5. PIPERACILLIN SODIUM\TAZOBACTAM SODIUM [Suspect]
     Active Substance: PIPERACILLIN SODIUM\TAZOBACTAM SODIUM
     Indication: Product used for unknown indication
  6. PIPERACILLIN SODIUM\TAZOBACTAM SODIUM [Suspect]
     Active Substance: PIPERACILLIN SODIUM\TAZOBACTAM SODIUM
     Route: 065
  7. PIPERACILLIN SODIUM\TAZOBACTAM SODIUM [Suspect]
     Active Substance: PIPERACILLIN SODIUM\TAZOBACTAM SODIUM
     Route: 065
  8. PIPERACILLIN SODIUM\TAZOBACTAM SODIUM [Suspect]
     Active Substance: PIPERACILLIN SODIUM\TAZOBACTAM SODIUM
  9. ATORVASTATIN [Suspect]
     Active Substance: ATORVASTATIN
     Indication: Product used for unknown indication
  10. ATORVASTATIN [Suspect]
     Active Substance: ATORVASTATIN
     Route: 065
  11. ATORVASTATIN [Suspect]
     Active Substance: ATORVASTATIN
     Route: 065
  12. ATORVASTATIN [Suspect]
     Active Substance: ATORVASTATIN
  13. APIXABAN [Suspect]
     Active Substance: APIXABAN
     Indication: Product used for unknown indication
  14. APIXABAN [Suspect]
     Active Substance: APIXABAN
     Route: 065
  15. APIXABAN [Suspect]
     Active Substance: APIXABAN
     Route: 065
  16. APIXABAN [Suspect]
     Active Substance: APIXABAN
  17. BISOPROLOL [Suspect]
     Active Substance: BISOPROLOL
     Indication: Product used for unknown indication
  18. BISOPROLOL [Suspect]
     Active Substance: BISOPROLOL
     Route: 065
  19. BISOPROLOL [Suspect]
     Active Substance: BISOPROLOL
     Route: 065
  20. BISOPROLOL [Suspect]
     Active Substance: BISOPROLOL
  21. CEFTRIAXONE [Suspect]
     Active Substance: CEFTRIAXONE
     Indication: Product used for unknown indication
  22. CEFTRIAXONE [Suspect]
     Active Substance: CEFTRIAXONE
     Route: 065
  23. CEFTRIAXONE [Suspect]
     Active Substance: CEFTRIAXONE
     Route: 065
  24. CEFTRIAXONE [Suspect]
     Active Substance: CEFTRIAXONE
  25. OMNIPAQUE [Suspect]
     Active Substance: IOHEXOL
     Indication: Product used for unknown indication
  26. OMNIPAQUE [Suspect]
     Active Substance: IOHEXOL
     Route: 065
  27. OMNIPAQUE [Suspect]
     Active Substance: IOHEXOL
     Route: 065
  28. OMNIPAQUE [Suspect]
     Active Substance: IOHEXOL
  29. SPIRONOLACTONE [Suspect]
     Active Substance: SPIRONOLACTONE
     Indication: Product used for unknown indication
  30. SPIRONOLACTONE [Suspect]
     Active Substance: SPIRONOLACTONE
     Route: 065
  31. SPIRONOLACTONE [Suspect]
     Active Substance: SPIRONOLACTONE
     Route: 065
  32. SPIRONOLACTONE [Suspect]
     Active Substance: SPIRONOLACTONE

REACTIONS (1)
  - Drug reaction with eosinophilia and systemic symptoms [Unknown]

NARRATIVE: CASE EVENT DATE: 20250726
